FAERS Safety Report 8853844 (Version 2)
Quarter: 2012Q4

REPORT INFORMATION
  Report Type: 
  Country: CA (occurrence: CA)
  Receive Date: 20121022
  Receipt Date: 20121207
  Transmission Date: 20130627
  Serious: Yes (Other)
  Sender: FDA-Public Use
  Company Number: PHHY2012CA093989

PATIENT
  Sex: Female

DRUGS (2)
  1. CLOZARIL [Suspect]
     Indication: SCHIZOPHRENIA
     Dosage: UNK
     Dates: start: 20100630
  2. INVEGA SUSTENNA [Concomitant]
     Dosage: 100 mg, UNK
     Route: 030

REACTIONS (3)
  - Choking sensation [Unknown]
  - Antipsychotic drug level increased [Unknown]
  - Nocturnal dyspnoea [Recovered/Resolved]
